FAERS Safety Report 10356735 (Version 1)
Quarter: 2014Q3

REPORT INFORMATION
  Report Type: Spontaneous
  Country: US (occurrence: None)
  Receive Date: 20140730
  Receipt Date: 20140730
  Transmission Date: 20150326
  Serious: No
  Sender: FDA-Public Use
  Company Number: None

PATIENT
  Age: 68 Year
  Sex: Male
  Weight: 85.73 kg

DRUGS (1)
  1. STIVARGA [Suspect]
     Active Substance: REGORAFENIB
     Indication: RECTAL NEOPLASM
     Route: 048
     Dates: start: 20140628, end: 20140725

REACTIONS (2)
  - Blister [None]
  - Tongue blistering [None]

NARRATIVE: CASE EVENT DATE: 20140724
